FAERS Safety Report 16927027 (Version 2)
Quarter: 2019Q4

REPORT INFORMATION
  Report Type: Spontaneous
  Country: DK (occurrence: DK)
  Receive Date: 20191016
  Receipt Date: 20191105
  Transmission Date: 20200122
  Serious: Yes (Other)
  Sender: FDA-Public Use
  Company Number: DK-BAUSCH-BL-2019-057995

PATIENT
  Age: 67 Year
  Sex: Male

DRUGS (2)
  1. DEXAMETHASONE. [Suspect]
     Active Substance: DEXAMETHASONE
     Indication: EYE INFLAMMATION
  2. DEXAMETHASONE. [Suspect]
     Active Substance: DEXAMETHASONE
     Indication: MACULAR OEDEMA
     Route: 047

REACTIONS (4)
  - Vitritis [Recovering/Resolving]
  - Iridocyclitis [Recovering/Resolving]
  - Cytomegalovirus chorioretinitis [Recovering/Resolving]
  - Cytomegalovirus infection [Recovering/Resolving]
